FAERS Safety Report 23662449 (Version 1)
Quarter: 2024Q1

REPORT INFORMATION
  Report Type: Spontaneous
  Country: US (occurrence: None)
  Receive Date: 20240321
  Receipt Date: 20240321
  Transmission Date: 20240410
  Serious: Yes (Other)
  Sender: FDA-Public Use
  Company Number: None

PATIENT
  Age: 59 Year
  Sex: Female
  Weight: 59.42 kg

DRUGS (1)
  1. IMATINIB [Suspect]
     Active Substance: IMATINIB
     Indication: Chronic myeloid leukaemia
     Dosage: FREQUENCY : DAILY;?
     Route: 048
     Dates: start: 2017, end: 2017

REACTIONS (5)
  - Erythema [None]
  - Skin swelling [None]
  - Rash macular [None]
  - Oral mucosal erythema [None]
  - Diarrhoea [None]

NARRATIVE: CASE EVENT DATE: 20170101
